FAERS Safety Report 16388928 (Version 2)
Quarter: 2019Q3

REPORT INFORMATION
  Report Type: Spontaneous
  Country: GT (occurrence: GT)
  Receive Date: 20190604
  Receipt Date: 20190709
  Transmission Date: 20191004
  Serious: Yes (Death, Hospitalization)
  Sender: FDA-Public Use
  Company Number: GT-JNJFOC-20190544791

PATIENT
  Age: 42 Year
  Sex: Male
  Weight: 43 kg

DRUGS (3)
  1. PREDNISONE. [Concomitant]
     Active Substance: PREDNISONE
     Dates: start: 20190320
  2. STELARA [Suspect]
     Active Substance: USTEKINUMAB
     Indication: CROHN^S DISEASE
     Route: 042
     Dates: start: 20190408, end: 20190408
  3. MESALAZINE [Concomitant]
     Active Substance: MESALAMINE
     Dates: start: 20190320

REACTIONS (4)
  - Hypoglycaemia [Fatal]
  - Arthropathy [Unknown]
  - Arrhythmia [Fatal]
  - Cardiac arrest [Fatal]
